FAERS Safety Report 6173620-4 (Version None)
Quarter: 2009Q2

REPORT INFORMATION
  Report Type: 
  Country: None (occurrence: None)
  Receive Date: 20090430
  Receipt Date: 20090421
  Transmission Date: 20091009
  Serious: Yes (Hospitalization)
  Sender: FDA-Public Use
  Company Number: TR-WATSON-2009-02770

PATIENT
  Sex: Female

DRUGS (2)
  1. MONODOX [Suspect]
     Indication: BRUCELLOSIS
     Dosage: UNKNOWN
  2. STREPTOMYCIN [Concomitant]
     Indication: BRUCELLOSIS

REACTIONS (1)
  - AUTOIMMUNE HEPATITIS [None]
